FAERS Safety Report 4899119-0 (Version None)
Quarter: 2006Q1

REPORT INFORMATION
  Report Type: 
  Country: None (occurrence: None)
  Receive Date: 20060202
  Receipt Date: 20060127
  Transmission Date: 20060701
  Serious: Yes (Other)
  Sender: FDA-Public Use
  Company Number: GB-AVENTIS-200610905GDDC

PATIENT
  Age: 33 Year
  Sex: Male

DRUGS (3)
  1. FLAGYL [Suspect]
     Indication: SINUSITIS
     Route: 048
  2. FLIXOTIDE [Concomitant]
     Dosage: DOSE: UNK
  3. CLARITHROMYCIN [Concomitant]

REACTIONS (2)
  - CONVULSION [None]
  - MUSCULOSKELETAL STIFFNESS [None]
